FAERS Safety Report 14197927 (Version 1)
Quarter: 2017Q4

REPORT INFORMATION
  Report Type: Spontaneous
  Country: US (occurrence: US)
  Receive Date: 20171117
  Receipt Date: 20171117
  Transmission Date: 20180321
  Serious: No
  Sender: FDA-Public Use
  Company Number: US-ALVOGEN-2016-ALVOGEN-087087

PATIENT
  Sex: Male
  Weight: 113.4 kg

DRUGS (1)
  1. LISINOPRIL. [Suspect]
     Active Substance: LISINOPRIL
     Indication: RENAL IMPAIRMENT
     Route: 048
     Dates: start: 2014, end: 201610

REACTIONS (1)
  - Cough [Unknown]
